FAERS Safety Report 18255977 (Version 3)
Quarter: 2020Q3

REPORT INFORMATION
  Report Type: Spontaneous
  Country: BR (occurrence: BR)
  Receive Date: 20200911
  Receipt Date: 20200928
  Transmission Date: 20201103
  Serious: Yes (Other)
  Sender: FDA-Public Use
  Company Number: BR-ABBVIE-20K-020-3559925-00

PATIENT
  Age: 57 Year
  Sex: Male
  Weight: 66 kg

DRUGS (2)
  1. OMEPRAZOLE. [Concomitant]
     Active Substance: OMEPRAZOLE
     Indication: PRODUCT USED FOR UNKNOWN INDICATION
     Route: 065
  2. HUMIRA [Suspect]
     Active Substance: ADALIMUMAB
     Indication: PSORIASIS
     Route: 058
     Dates: start: 200608, end: 20200701

REACTIONS (12)
  - Seizure [Recovered/Resolved]
  - Tuberculosis [Recovering/Resolving]
  - Brain abscess [Recovering/Resolving]
  - Atypical pneumonia [Not Recovered/Not Resolved]
  - Pyrexia [Unknown]
  - Brain abscess [Not Recovered/Not Resolved]
  - Malaise [Unknown]
  - Seizure [Recovered/Resolved]
  - Platelet count increased [Recovered/Resolved]
  - Headache [Unknown]
  - Syncope [Unknown]
  - Pyrexia [Recovered/Resolved]

NARRATIVE: CASE EVENT DATE: 2008
